FAERS Safety Report 8890505 (Version 3)
Quarter: 2013Q4

REPORT INFORMATION
  Report Type: Spontaneous
  Country: MT (occurrence: MT)
  Receive Date: 20121107
  Receipt Date: 20131119
  Transmission Date: 20140711
  Serious: Yes (Other)
  Sender: FDA-Public Use
  Company Number: MT-009507513-1211MLT000594

PATIENT
  Age: 13 Year
  Sex: Female

DRUGS (1)
  1. SINGULAIR 10 MG TABLETS [Suspect]
     Indication: PRODUCT USED FOR UNKNOWN INDICATION
     Dosage: 5 MG, QD
     Route: 048

REACTIONS (2)
  - Allergic granulomatous angiitis [Recovering/Resolving]
  - Wrong technique in drug usage process [Unknown]
